FAERS Safety Report 11174455 (Version 2)
Quarter: 2015Q3

REPORT INFORMATION
  Report Type: Spontaneous
  Country: US (occurrence: US)
  Receive Date: 20150609
  Receipt Date: 20150827
  Transmission Date: 20151125
  Serious: Yes (Hospitalization)
  Sender: FDA-Public Use
  Company Number: US-ENDO PHARMACEUTICALS INC.-2015-001220

PATIENT
  Age: 62 Year
  Sex: Male
  Weight: 135.29 kg

DRUGS (2)
  1. TESTIM [Suspect]
     Active Substance: TESTOSTERONE
     Indication: ANDROGEN REPLACEMENT THERAPY
     Route: 062
     Dates: start: 201102, end: 201102
  2. ANDRODERM [Suspect]
     Active Substance: TESTOSTERONE
     Indication: ANDROGEN REPLACEMENT THERAPY
     Route: 065
     Dates: start: 201106, end: 201202

REACTIONS (4)
  - Cardiac failure congestive [Unknown]
  - Scrotal oedema [Unknown]
  - Cellulitis [Recovered/Resolved]
  - Hydrocele [Unknown]

NARRATIVE: CASE EVENT DATE: 201104
